FAERS Safety Report 9142196 (Version 1)
Quarter: 2013Q1

REPORT INFORMATION
  Report Type: Spontaneous
  Country: US (occurrence: US)
  Receive Date: 20130305
  Receipt Date: 20130305
  Transmission Date: 20140127
  Serious: Yes (Hospitalization)
  Sender: FDA-Public Use
  Company Number: US-009507513-1303USA000514

PATIENT
  Age: 3 Year
  Sex: Female

DRUGS (1)
  1. CORICIDIN HBP COUGH AND COLD [Suspect]
     Indication: PRODUCT USED FOR UNKNOWN INDICATION
     Dosage: 24-32MG
     Route: 048
     Dates: start: 20121109

REACTIONS (2)
  - Accidental overdose [Unknown]
  - Lip discolouration [Unknown]
